FAERS Safety Report 9224993 (Version 2)
Quarter: 2013Q4

REPORT INFORMATION
  Report Type: Report from Study
  Country: GB (occurrence: GB)
  Receive Date: 20130411
  Receipt Date: 20131009
  Transmission Date: 20140711
  Serious: Yes (Hospitalization, Other)
  Sender: FDA-Public Use
  Company Number: GB-JNJFOC-20130405343

PATIENT
  Age: 57 Year
  Sex: Male
  Weight: 75 kg

DRUGS (11)
  1. USTEKINUMAB [Suspect]
     Indication: PSORIASIS
     Route: 058
     Dates: start: 20100913
  2. DICLOFENAC [Concomitant]
     Dates: start: 20050513
  3. DOVOBET [Concomitant]
     Dates: start: 20090715
  4. FOLIC ACID [Concomitant]
     Dates: start: 20100825
  5. LANSOPRAZOLE [Concomitant]
     Dates: start: 20061102
  6. TRAMADOL [Concomitant]
     Dates: start: 20070201
  7. DESLORATADINE [Concomitant]
     Dates: start: 20090715
  8. CICLOSPORIN [Concomitant]
     Dates: start: 20100825
  9. FLUOXETINE [Concomitant]
     Dates: start: 20120706
  10. DIAZEPAM [Concomitant]
     Dates: start: 20120810
  11. NAPROXEN [Concomitant]
     Dates: start: 20120810

REACTIONS (3)
  - Staphylococcal infection [Recovered/Resolved]
  - Fall [Unknown]
  - Laceration [Unknown]
